FAERS Safety Report 8213645-8 (Version None)
Quarter: 2012Q1

REPORT INFORMATION
  Report Type: 
  Country: None (occurrence: None)
  Receive Date: 20120315
  Receipt Date: 20120306
  Transmission Date: 20120608
  Serious: Yes (Other)
  Sender: FDA-Public Use
  Company Number: US-ASTRAZENECA-2012SE01311

PATIENT
  Age: 494 Month
  Sex: Female
  Weight: 63.5 kg

DRUGS (5)
  1. SEROQUEL XR [Suspect]
     Indication: SCHIZOAFFECTIVE DISORDER
     Route: 048
     Dates: end: 20111011
  2. ABILIFY [Concomitant]
  3. SEROQUEL XR [Suspect]
     Route: 048
     Dates: end: 20111110
  4. DEPAKOTE [Concomitant]
     Route: 048
     Dates: start: 20120101, end: 20120101
  5. LORAZEPAM [Concomitant]

REACTIONS (1)
  - ELECTROCARDIOGRAM QT PROLONGED [None]
